FAERS Safety Report 16735780 (Version 2)
Quarter: 2019Q3

REPORT INFORMATION
  Report Type: Spontaneous
  Country: US (occurrence: US)
  Receive Date: 20190823
  Receipt Date: 20190827
  Transmission Date: 20191005
  Serious: No
  Sender: FDA-Public Use
  Company Number: US-009507513-1908USA008936

PATIENT
  Age: 23 Year
  Sex: Female
  Weight: 62.59 kg

DRUGS (1)
  1. NEXPLANON [Suspect]
     Active Substance: ETONOGESTREL
     Indication: CONTRACEPTION
     Dosage: 1 ROD; FREQUENCY: ^3 YEARS^
     Route: 059
     Dates: start: 20190806

REACTIONS (4)
  - Product quality issue [Unknown]
  - No adverse event [Unknown]
  - Device difficult to use [Not Recovered/Not Resolved]
  - Complication of device insertion [Not Recovered/Not Resolved]

NARRATIVE: CASE EVENT DATE: 20190806
